FAERS Safety Report 9393310 (Version 1)
Quarter: 2013Q3

REPORT INFORMATION
  Report Type: Spontaneous
  Country: US (occurrence: US)
  Receive Date: 20130710
  Receipt Date: 20130710
  Transmission Date: 20140515
  Serious: Yes (Hospitalization)
  Sender: FDA-Public Use
  Company Number: US-B.I. PHARMACEUTICALS,INC./RIDGEFIELD-2013-BI-19656BP

PATIENT
  Sex: Female
  Weight: 59 kg

DRUGS (1)
  1. PRADAXA [Suspect]
     Indication: ATRIAL FIBRILLATION
     Route: 048
     Dates: start: 2010, end: 201112

REACTIONS (3)
  - Haemorrhage [Recovered/Resolved]
  - Back injury [Recovered/Resolved]
  - Constipation [Recovered/Resolved]
